FAERS Safety Report 16466396 (Version 2)
Quarter: 2019Q2

REPORT INFORMATION
  Report Type: Spontaneous
  Country: US (occurrence: US)
  Receive Date: 20190622
  Receipt Date: 20190627
  Transmission Date: 20190711
  Serious: No
  Sender: FDA-Public Use
  Company Number: US-ELI_LILLY_AND_COMPANY-US201906009819

PATIENT
  Sex: Male

DRUGS (2)
  1. TRULICITY [Suspect]
     Active Substance: DULAGLUTIDE
     Indication: DIABETES MELLITUS
     Dosage: 0.75 MG, UNKNOWN
     Route: 058
     Dates: start: 20190611
  2. HUMALOG [Suspect]
     Active Substance: INSULIN LISPRO
     Indication: PRODUCT USED FOR UNKNOWN INDICATION
     Dosage: UNK UNK, UNKNOWN
     Route: 065

REACTIONS (11)
  - Glycosylated haemoglobin increased [Unknown]
  - Abdominal distension [Not Recovered/Not Resolved]
  - Nausea [Recovered/Resolved]
  - Weight increased [Not Recovered/Not Resolved]
  - Fatigue [Unknown]
  - Blood glucose decreased [Recovered/Resolved]
  - Blood glucose decreased [Recovered/Resolved]
  - Dyspepsia [Not Recovered/Not Resolved]
  - Constipation [Not Recovered/Not Resolved]
  - Decreased appetite [Not Recovered/Not Resolved]
  - Blood glucose increased [Recovered/Resolved]

NARRATIVE: CASE EVENT DATE: 201906
